FAERS Safety Report 19433245 (Version 12)
Quarter: 2025Q2

REPORT INFORMATION
  Report Type: Report from Study
  Country: MX (occurrence: MX)
  Receive Date: 20210617
  Receipt Date: 20250620
  Transmission Date: 20250716
  Serious: Yes (Other)
  Sender: TAKEDA
  Company Number: MX-TAKEDA-2021TUS019837

PATIENT
  Age: 66 Year
  Sex: Male

DRUGS (2)
  1. VEDOLIZUMAB [Suspect]
     Active Substance: VEDOLIZUMAB
     Indication: Colitis ulcerative
  2. VEDOLIZUMAB [Suspect]
     Active Substance: VEDOLIZUMAB

REACTIONS (13)
  - Bacterial infection [Not Recovered/Not Resolved]
  - Drug ineffective [Unknown]
  - Rash pruritic [Not Recovered/Not Resolved]
  - Diarrhoea [Recovering/Resolving]
  - Blood creatinine increased [Not Recovered/Not Resolved]
  - Rash [Recovering/Resolving]
  - Pruritus [Recovering/Resolving]
  - Product availability issue [Not Recovered/Not Resolved]
  - Respiratory tract infection bacterial [Not Recovered/Not Resolved]
  - Discomfort [Not Recovered/Not Resolved]
  - Headache [Not Recovered/Not Resolved]
  - Oropharyngeal pain [Not Recovered/Not Resolved]
  - Influenza [Not Recovered/Not Resolved]

NARRATIVE: CASE EVENT DATE: 20210322
